FAERS Safety Report 4367799-4 (Version None)
Quarter: 2004Q2

REPORT INFORMATION
  Report Type: 
  Country: None (occurrence: None)
  Receive Date: 20040528
  Receipt Date: 20031124
  Transmission Date: 20050107
  Serious: Yes (Hospitalization)
  Sender: FDA-Public Use
  Company Number: US-JNJFOC-20030901915

PATIENT
  Age: 7 Year
  Sex: Male
  Weight: 30.5271 kg

DRUGS (1)
  1. SPORANOX [Suspect]
     Indication: HISTOPLASMOSIS
     Dosage: 1.5 DOSE(S), 2 IN 1 DAY;  1 DOSE(S), 1 IN 1 DAY
     Dates: start: 20030903

REACTIONS (4)
  - ABDOMINAL PAIN [None]
  - CHEST PAIN [None]
  - LOOSE STOOLS [None]
  - VOMITING [None]
